FAERS Safety Report 25049576 (Version 5)
Quarter: 2025Q3

REPORT INFORMATION
  Report Type: Report from Study
  Country: CA (occurrence: CA)
  Receive Date: 20250307
  Receipt Date: 20250810
  Transmission Date: 20251021
  Serious: Yes (Other)
  Sender: ALEXION PHARMACEUTICALS
  Company Number: CA-AstraZeneca-CH-00820001A

PATIENT
  Age: 46 Year
  Sex: Female

DRUGS (33)
  1. SOLIRIS [Suspect]
     Active Substance: ECULIZUMAB
     Indication: Neuromyelitis optica spectrum disorder
     Dosage: 900 MILLIGRAM, QW
     Dates: start: 20200515, end: 20200605
  2. SOLIRIS [Suspect]
     Active Substance: ECULIZUMAB
     Dosage: 1200 MILLIGRAM, Q2W
     Dates: start: 20200614
  3. LEVOTHYROXINE [Concomitant]
     Active Substance: LEVOTHYROXINE
     Route: 065
  4. DOMPERIDONE [Concomitant]
     Active Substance: DOMPERIDONE
     Route: 065
  5. ACYCLOVIR [Concomitant]
     Active Substance: ACYCLOVIR
     Route: 065
  6. PANTOPRAZOLE [Concomitant]
     Active Substance: PANTOPRAZOLE
     Route: 065
  7. NORVASC [Concomitant]
     Active Substance: AMLODIPINE BESYLATE
     Dosage: 5 MILLIGRAM, ONE TABLET  QD FOR 30 DAYS
  8. LIORESAL [Concomitant]
     Active Substance: BACLOFEN
     Dosage: 10 MILLIGRAM, 1.5 TABLET  TID
  9. OSCAL [Concomitant]
     Active Substance: CALCIUM CARBONATE
     Dosage: ONE TABLET 500 MILLIGRAM, BID
  10. TEGRETOL XR [Concomitant]
     Active Substance: CARBAMAZEPINE
     Dosage: ONE TABLET 200 MILLIGRAM, BID
  11. REFRESH PLUS [Concomitant]
     Active Substance: CARBOXYMETHYLCELLULOSE SODIUM
     Dosage: UNK, QD ADMINISTER 1 DROP INTO BOTH EYES
  12. VITAMIN D3 [Concomitant]
     Active Substance: CHOLECALCIFEROL
     Dosage: ONE TABLET 25 MICROGRAM, QD
  13. VITAMIN B12 [Concomitant]
     Active Substance: CYANOCOBALAMIN
     Dosage: 1 DOSAGE FORM, QD (ONE TABLET)
  14. PROLIA [Concomitant]
     Active Substance: DENOSUMAB
  15. TRULICITY [Concomitant]
     Active Substance: DULAGLUTIDE
     Dosage: UNK, INJECT 0.75 UNDER 2 ML MG QW
  16. TRULICITY [Concomitant]
     Active Substance: DULAGLUTIDE
     Dosage: UNK, INJECT 1.5 MG UNDER 4ML QW
  17. ESTRADIOL [Concomitant]
     Active Substance: ESTRADIOL
     Dosage: UNK, 100 MCG/HR PLACE 1 PATCH ON THE SKIN Q2W
  18. FLUTICASONE PROPIONATE AND SALMETEROL [Concomitant]
     Active Substance: FLUTICASONE PROPIONATE\SALMETEROL XINAFOATE
     Dosage: UNK, 250-50 MCG/DOSE DISKUS INHALER BID, PRN
  19. NOVORAPID [Concomitant]
     Active Substance: INSULIN ASPART
     Dosage: UNK, 100 UNIT/ML  TID, BEFORE MEALS
  20. TRESIBA [Concomitant]
     Active Substance: INSULIN DEGLUDEC
     Route: 065
  21. SYNTHROID [Concomitant]
     Active Substance: LEVOTHYROXINE SODIUM
     Dosage: ONE TABLET 175 MICROGRAM, QD FOR 30 DAYS
  22. GLUCOPHAGE [Concomitant]
     Active Substance: METFORMIN HYDROCHLORIDE
     Dosage: 1000 MILLIGRAM, BID, WITH MEALS
  23. METOCLOPRAMIDE HYDROCHLORIDE [Concomitant]
     Active Substance: METOCLOPRAMIDE HYDROCHLORIDE
     Indication: Nausea
     Dosage: ONE TABLET 10 MILLIGRAM, TID, UPTO 10 DOSES
  24. MYRBETRIQ [Concomitant]
     Active Substance: MIRABEGRON
     Dosage: ONE TABLET 50 MILLIGRAM, QD
  25. AVENTYL [Concomitant]
     Active Substance: NORTRIPTYLINE HYDROCHLORIDE
     Dosage: 60 MILLIGRAM, QHS
  26. Polyride fe [Concomitant]
     Dosage: ONE CAPSULE, 150 MILLIGRAM, QOD
  27. LYRICA [Concomitant]
     Active Substance: PREGABALIN
     Dosage: 200 MILLIGRAM, TID
  28. ALTACE [Concomitant]
     Active Substance: RAMIPRIL
     Dosage: ONE CAPSULE  5 MILLIGRAM, QD WITH LUNCH
  29. CRESTOR [Concomitant]
     Active Substance: ROSUVASTATIN CALCIUM
     Dosage: 10 MILLIGRAM, QD
  30. VENTOLIN [Concomitant]
     Active Substance: ALBUTEROL SULFATE
     Indication: Dyspnoea
     Dosage: UNK, 100 MCG/ACTUATION HFA AEROSOL INHALER INHALE 2 PUFFS QID
  31. MOUNJARO [Concomitant]
     Active Substance: TIRZEPATIDE
     Dosage: 2.5 MILLIGRAM, QW FOR 28 DAYS
  32. MOUNJARO [Concomitant]
     Active Substance: TIRZEPATIDE
     Dosage: 5 MILLIGRAM, QW FOR 150 DAYS
  33. MOUNJARO [Concomitant]
     Active Substance: TIRZEPATIDE
     Dosage: 7.5 MILLIGRAM, QW

REACTIONS (4)
  - Coeliac disease [Unknown]
  - Action tremor [Unknown]
  - Aphasia [Unknown]
  - Chest pain [Unknown]
